FAERS Safety Report 5847477-2 (Version None)
Quarter: 2008Q3

REPORT INFORMATION
  Report Type: 
  Country: None (occurrence: None)
  Receive Date: 20080814
  Receipt Date: 20080804
  Transmission Date: 20090109
  Serious: Yes (Other)
  Sender: FDA-Public Use
  Company Number: 2008AP001899

PATIENT
  Age: 8 Week
  Sex: Male

DRUGS (1)
  1. TRAMADOL HYDROCHLORIDE [Suspect]

REACTIONS (9)
  - BRUXISM [None]
  - CLONUS [None]
  - CONVULSION [None]
  - DRUG TOXICITY [None]
  - DYSTONIA [None]
  - GRUNTING [None]
  - INTENTIONAL DRUG MISUSE [None]
  - PUPILLARY REFLEX IMPAIRED [None]
  - RESPIRATORY ACIDOSIS [None]
